FAERS Safety Report 4956002-X (Version None)
Quarter: 2006Q1

REPORT INFORMATION
  Report Type: 
  Country: None (occurrence: None)
  Receive Date: 20060328
  Receipt Date: 20060320
  Transmission Date: 20060701
  Serious: Yes (Hospitalization)
  Sender: FDA-Public Use
  Company Number: US-MERCK-0603USA03333

PATIENT
  Sex: Female
  Weight: 60 kg

DRUGS (1)
  1. VIOXX [Suspect]
     Indication: OSTEOARTHRITIS
     Route: 048
     Dates: start: 20000401, end: 20040401

REACTIONS (4)
  - ATRIAL TACHYCARDIA [None]
  - CARDIAC FAILURE CONGESTIVE [None]
  - SICK SINUS SYNDROME [None]
  - TRANSIENT ISCHAEMIC ATTACK [None]
